FAERS Safety Report 12717085 (Version 1)
Quarter: 2016Q3

REPORT INFORMATION
  Report Type: Spontaneous
  Country: US (occurrence: US)
  Receive Date: 20160902
  Receipt Date: 20160902
  Transmission Date: 20161109
  Serious: Yes (Hospitalization)
  Sender: FDA-Public Use
  Company Number: None

PATIENT
  Age: 71 Year
  Sex: Male
  Weight: 55 kg

DRUGS (22)
  1. LASIX [Concomitant]
     Active Substance: FUROSEMIDE
  2. FLOMAX [Concomitant]
     Active Substance: TAMSULOSIN HYDROCHLORIDE
  3. CALCIUM CARBONATE/VITAMIN D3 [Concomitant]
     Active Substance: CALCIUM CARBONATE\CHOLECALCIFEROL
  4. CHOLECALCIFEROL [Concomitant]
     Active Substance: CHOLECALCIFEROL
  5. DOXYCYCLINE (ADOXA) [Concomitant]
  6. VITAMIN D3 [Concomitant]
     Active Substance: CHOLECALCIFEROL
  7. DECADRON [Concomitant]
     Active Substance: DEXAMETHASONE
  8. NYSTATIN (MYCOSTATIN) [Concomitant]
  9. VALACYCLOVIR (VALTREX) [Concomitant]
  10. FERROUS GLUCONATE [Concomitant]
     Active Substance: FERROUS GLUCONATE
  11. FOS/PANTETHINE [Concomitant]
  12. MAGNESIUM HYDROXIDE. [Concomitant]
     Active Substance: MAGNESIUM HYDROXIDE
  13. PATOPRAZOLE (PROTONIX) [Concomitant]
  14. SENNOSIDES (SENNA) [Concomitant]
  15. OXYCODONE (OXYCONTIN) [Concomitant]
  16. OXYCODONE-ACETAMINOPHEN (PERCOCET) [Concomitant]
  17. NEULASTA [Suspect]
     Active Substance: PEGFILGRASTIM
     Indication: ACUTE MYELOID LEUKAEMIA
     Route: 058
     Dates: start: 20131221, end: 20160828
  18. DSS (COLACE) [Concomitant]
  19. MIRABEGRON [Concomitant]
     Active Substance: MIRABEGRON
  20. TYLENOL [Concomitant]
     Active Substance: ACETAMINOPHEN
  21. FOSAMAX [Concomitant]
     Active Substance: ALENDRONATE SODIUM
  22. LACTOBAC CMB [Concomitant]

REACTIONS (1)
  - Myelodysplastic syndrome [None]

NARRATIVE: CASE EVENT DATE: 20160829
